FAERS Safety Report 7973945-3 (Version None)
Quarter: 2011Q4

REPORT INFORMATION
  Report Type: 
  Country: None (occurrence: None)
  Receive Date: 20111213
  Receipt Date: 20111201
  Transmission Date: 20120403
  Serious: Yes (Other)
  Sender: FDA-Public Use
  Company Number: DE-ASTRAZENECA-2011SE69607

PATIENT
  Sex: Female
  Weight: 71 kg

DRUGS (6)
  1. DEXAMETHASONE SODIUM PHOSPHATE [Suspect]
     Indication: METASTASES TO CENTRAL NERVOUS SYSTEM
     Route: 048
  2. CITALOPRAM [Concomitant]
     Indication: DEPRESSION
     Route: 048
  3. ESOMEPRAZOLE SODIUM [Concomitant]
     Route: 048
  4. PALLADONE [Concomitant]
     Indication: METASTASES TO BONE
     Route: 048
  5. IRESSA [Suspect]
     Indication: NON-SMALL CELL LUNG CANCER
     Route: 048
     Dates: start: 20110301
  6. NOVALGIN [Concomitant]
     Indication: PAIN

REACTIONS (2)
  - IMPAIRED HEALING [None]
  - PARONYCHIA [None]
